FAERS Safety Report 9891275 (Version 1)
Quarter: 2014Q1

REPORT INFORMATION
  Report Type: Spontaneous
  Country: US (occurrence: None)
  Receive Date: 20140211
  Receipt Date: 20140211
  Transmission Date: 20141002
  Serious: Yes (Other)
  Sender: FDA-Public Use
  Company Number: None

PATIENT
  Age: 20 Year
  Sex: Female
  Weight: 78.47 kg

DRUGS (1)
  1. COGENTIN [Suspect]
     Indication: SCHIZOPHRENIA
     Dosage: 2X

REACTIONS (1)
  - Convulsion [None]
